FAERS Safety Report 23666804 (Version 1)
Quarter: 2024Q1

REPORT INFORMATION
  Report Type: Spontaneous
  Country: US (occurrence: US)
  Receive Date: 20240325
  Receipt Date: 20240325
  Transmission Date: 20240410
  Serious: No
  Sender: FDA-Public Use
  Company Number: US-ACADIA PHARMACEUTICALS INC.-ACA-2024-TRF-001047

PATIENT
  Sex: Female

DRUGS (2)
  1. DAYBUE [Suspect]
     Active Substance: TROFINETIDE
     Indication: Neurodevelopmental disorder
     Dosage: UNKNOWN
     Route: 065
  2. DAYBUE [Suspect]
     Active Substance: TROFINETIDE
     Indication: Epilepsy

REACTIONS (1)
  - Off label use [Unknown]
